FAERS Safety Report 11783332 (Version 1)
Quarter: 2015Q4

REPORT INFORMATION
  Report Type: Spontaneous
  Country: KR (occurrence: KR)
  Receive Date: 20151127
  Receipt Date: 20151127
  Transmission Date: 20160305
  Serious: Yes (Other)
  Sender: FDA-Public Use
  Company Number: PHHY2015KR154744

PATIENT
  Age: 32 Year
  Sex: Male

DRUGS (2)
  1. NILOTINIB [Suspect]
     Active Substance: NILOTINIB
     Dosage: 800 MG, UNK
     Route: 065
  2. NILOTINIB [Suspect]
     Active Substance: NILOTINIB
     Indication: CHRONIC MYELOID LEUKAEMIA
     Dosage: 600 MG, UNK
     Route: 065

REACTIONS (6)
  - Rash pustular [Recovering/Resolving]
  - Alopecia [Unknown]
  - Rosacea [Recovering/Resolving]
  - Acne [Recovering/Resolving]
  - Dermatitis acneiform [Recovering/Resolving]
  - Papule [Recovering/Resolving]
